FAERS Safety Report 10191954 (Version 3)
Quarter: 2014Q3

REPORT INFORMATION
  Report Type: Spontaneous
  Country: US (occurrence: US)
  Receive Date: 20140523
  Receipt Date: 20140904
  Transmission Date: 20150326
  Serious: Yes (Hospitalization)
  Sender: FDA-Public Use
  Company Number: US-BAYER-2014-073512

PATIENT
  Age: 31 Year
  Sex: Female
  Weight: 78 kg

DRUGS (3)
  1. METRONIDAZOLE. [Concomitant]
     Active Substance: METRONIDAZOLE
     Dosage: UNK
     Dates: start: 20130417
  2. ONDANSETRON [Concomitant]
     Active Substance: ONDANSETRON
     Dosage: UNK
     Dates: start: 20130417
  3. MIRENA [Suspect]
     Active Substance: LEVONORGESTREL
     Indication: CONTRACEPTION
     Dosage: 20 MCG/24HR, CONT
     Route: 015
     Dates: start: 20100208, end: 20130503

REACTIONS (7)
  - Medical device discomfort [None]
  - Uterine perforation [None]
  - Medical device pain [None]
  - Injury [None]
  - Device issue [None]
  - Device dislocation [None]
  - Pain [None]

NARRATIVE: CASE EVENT DATE: 201212
